FAERS Safety Report 21908254 (Version 2)
Quarter: 2023Q1

REPORT INFORMATION
  Report Type: Spontaneous
  Country: JP (occurrence: JP)
  Receive Date: 20230125
  Receipt Date: 20230202
  Transmission Date: 20230418
  Serious: Yes (Other)
  Sender: FDA-Public Use
  Company Number: JP-BAYER-2023A010078

PATIENT
  Age: 56 Year
  Sex: Female

DRUGS (1)
  1. IOPROMIDE [Suspect]
     Active Substance: IOPROMIDE
     Indication: Computerised tomogram

REACTIONS (2)
  - Cholangitis [Recovering/Resolving]
  - Pancreatitis acute [Recovering/Resolving]
